FAERS Safety Report 24299648 (Version 4)
Quarter: 2024Q4

REPORT INFORMATION
  Report Type: Spontaneous
  Country: US (occurrence: US)
  Receive Date: 20240909
  Receipt Date: 20241011
  Transmission Date: 20250115
  Serious: No
  Sender: PFIZER
  Company Number: US-PFIZER INC-PV202400111788

PATIENT
  Age: 69 Year
  Sex: Female

DRUGS (3)
  1. IBRANCE [Suspect]
     Active Substance: PALBOCICLIB
     Dosage: 75 MG
  2. IBRANCE [Suspect]
     Active Substance: PALBOCICLIB
     Dosage: CUT TABLET IN HALF AND TAKE ONE HALF TABLET AS DIRECTED. TAKE FOR 21 DAYS AND THEN STOP FOR 7 DAYS
     Route: 048
  3. IBRANCE [Suspect]
     Active Substance: PALBOCICLIB
     Dosage: HALF TABLET EVERY OTHER DAY
     Dates: start: 20241007

REACTIONS (3)
  - Headache [Unknown]
  - Off label use [Unknown]
  - Wrong technique in product usage process [Unknown]
